FAERS Safety Report 4302231-8 (Version None)
Quarter: 2004Q1

REPORT INFORMATION
  Report Type: 
  Country: None (occurrence: None)
  Receive Date: 20040220
  Receipt Date: 20040206
  Transmission Date: 20041129
  Serious: Yes (Death, Life-Threatening)
  Sender: FDA-Public Use
  Company Number: 2004-06676

PATIENT
  Age: 52 Year
  Sex: Male
  Weight: 51 kg

DRUGS (3)
  1. VIREAD [Suspect]
     Indication: HIV INFECTION
     Dosage: 300 MG QD PO
     Route: 048
     Dates: start: 20020830, end: 20040108
  2. KALETRA [Concomitant]
  3. ZIAGEN [Concomitant]

REACTIONS (4)
  - AZOTAEMIA [None]
  - PULMONARY OEDEMA [None]
  - RENAL FAILURE [None]
  - RENAL TUBULAR ACIDOSIS [None]
